FAERS Safety Report 5084598-9 (Version None)
Quarter: 2006Q3

REPORT INFORMATION
  Report Type: 
  Country: None (occurrence: None)
  Receive Date: 20060821
  Receipt Date: 20060814
  Transmission Date: 20061208
  Serious: Yes (Other)
  Sender: FDA-Public Use
  Company Number: 2006AC01489

PATIENT
  Age: 21101 Day
  Sex: Male

DRUGS (4)
  1. CRESTOR [Suspect]
     Indication: HYPERCHOLESTEROLAEMIA
     Route: 048
     Dates: start: 20060701, end: 20060708
  2. ULTRACORTENOL [Concomitant]
     Route: 031
  3. HOMATROPINE [Concomitant]
  4. PRED FORTE [Concomitant]

REACTIONS (1)
  - UVEITIS [None]
